FAERS Safety Report 17405278 (Version 1)
Quarter: 2020Q1

REPORT INFORMATION
  Report Type: Report from Study
  Country: US (occurrence: US)
  Receive Date: 20200212
  Receipt Date: 20200212
  Transmission Date: 20200409
  Serious: Yes (Other)
  Sender: FDA-Public Use
  Company Number: US-BAUSCH-BL-2020-004200

PATIENT
  Age: 43 Year
  Sex: Male

DRUGS (2)
  1. XIFAXAN [Suspect]
     Active Substance: RIFAXIMIN
     Indication: HEPATIC CIRRHOSIS
     Route: 048
     Dates: end: 202001
  2. XIFAXAN [Suspect]
     Active Substance: RIFAXIMIN
     Route: 048
     Dates: start: 20200110

REACTIONS (7)
  - Insurance issue [Unknown]
  - Dizziness [Recovering/Resolving]
  - Loss of consciousness [Unknown]
  - Coma [Unknown]
  - Thinking abnormal [Not Recovered/Not Resolved]
  - Therapy cessation [Unknown]
  - Confusional state [Not Recovered/Not Resolved]

NARRATIVE: CASE EVENT DATE: 202001
